FAERS Safety Report 8954568 (Version 2)
Quarter: 2012Q4

REPORT INFORMATION
  Report Type: 
  Country: US (occurrence: US)
  Receive Date: 20121207
  Receipt Date: 20121227
  Transmission Date: 20130627
  Serious: Yes (Other)
  Sender: FDA-Public Use
  Company Number: US-ELI_LILLY_AND_COMPANY-US201211009199

PATIENT
  Sex: Female

DRUGS (7)
  1. HUMULIN REGULAR [Suspect]
     Indication: DIABETES MELLITUS
  2. HUMULIN 30% REGULAR, 70% NPH [Suspect]
     Indication: DIABETES MELLITUS
  3. HUMALOG LISPRO [Suspect]
     Indication: DIABETES MELLITUS
     Dosage: UNK, tid
  4. HUMALOG LISPRO [Suspect]
     Dosage: UNK, tid
  5. HUMALOG LISPRO [Suspect]
     Dosage: UNK, tid
  6. LANTUS [Concomitant]
     Dosage: 14 u, each evening
     Dates: start: 201207
  7. ZANTAC [Concomitant]

REACTIONS (12)
  - Corneal transplant [Unknown]
  - Cataract [Unknown]
  - Visual acuity reduced [Not Recovered/Not Resolved]
  - Asthenia [Not Recovered/Not Resolved]
  - Unevaluable event [Unknown]
  - Confusional state [Unknown]
  - Vision blurred [Unknown]
  - Hearing impaired [Unknown]
  - Blood glucose increased [Unknown]
  - Blood glucose fluctuation [Unknown]
  - Incorrect product storage [Unknown]
  - Glycosylated haemoglobin increased [Unknown]
